FAERS Safety Report 8965767 (Version 1)
Quarter: 2012Q4

REPORT INFORMATION
  Report Type: Spontaneous
  Country: AU (occurrence: None)
  Receive Date: 20121204
  Receipt Date: 20121204
  Transmission Date: 20130627
  Serious: Yes (Other)
  Sender: FDA-Public Use
  Company Number: 2012-21212

PATIENT
  Age: 10 Month
  Sex: Male

DRUGS (1)
  1. PROPRANOLOL (WATSON LABORATORIES) [Suspect]

REACTIONS (5)
  - Wheezing [None]
  - Cough [None]
  - Off label use [None]
  - Bronchiolitis [None]
  - Viral upper respiratory tract infection [None]
